FAERS Safety Report 25968507 (Version 1)
Quarter: 2025Q4

REPORT INFORMATION
  Report Type: Report from Study
  Country: US (occurrence: US)
  Receive Date: 20251028
  Receipt Date: 20251028
  Transmission Date: 20260117
  Serious: Yes (Hospitalization)
  Sender: ALEXION PHARMACEUTICALS
  Company Number: US-AstraZeneca-CH-00979538A

PATIENT
  Sex: Male
  Weight: 95.254 kg

DRUGS (1)
  1. ACALABRUTINIB [Suspect]
     Active Substance: ACALABRUTINIB
     Indication: B-cell lymphoma
     Dosage: 100 MILLIGRAM, Q12H
     Dates: start: 202506

REACTIONS (3)
  - Headache [Recovering/Resolving]
  - Herpes zoster [Recovering/Resolving]
  - Skin discolouration [Recovering/Resolving]
